FAERS Safety Report 12787929 (Version 1)
Quarter: 2016Q3

REPORT INFORMATION
  Report Type: Spontaneous
  Country: US (occurrence: US)
  Receive Date: 20160928
  Receipt Date: 20160928
  Transmission Date: 20161109
  Serious: Yes (Life-Threatening, Hospitalization)
  Sender: FDA-Public Use
  Company Number: None

PATIENT
  Age: 68 Year
  Sex: Male
  Weight: 59.5 kg

DRUGS (2)
  1. CEFEPIME [Suspect]
     Active Substance: CEFEPIME HYDROCHLORIDE
     Indication: EXTRADURAL ABSCESS
     Route: 042
     Dates: start: 20160503, end: 20160503
  2. VANCOMYCIN [Suspect]
     Active Substance: VANCOMYCIN
     Indication: EXTRADURAL ABSCESS
     Route: 042
     Dates: start: 20160503, end: 20160503

REACTIONS (3)
  - Lacrimation increased [None]
  - Throat tightness [None]
  - Dyspnoea [None]

NARRATIVE: CASE EVENT DATE: 20160503
